FAERS Safety Report 9801037 (Version 1)
Quarter: 2014Q1

REPORT INFORMATION
  Report Type: Spontaneous
  Country: SE (occurrence: SE)
  Receive Date: 20140107
  Receipt Date: 20140107
  Transmission Date: 20141002
  Serious: Yes (Hospitalization, Other)
  Sender: FDA-Public Use
  Company Number: SE-CELGENEUS-150-21880-13120088

PATIENT
  Sex: Male
  Weight: 66 kg

DRUGS (10)
  1. REVLIMID [Suspect]
     Indication: PLASMA CELL MYELOMA
     Route: 048
     Dates: start: 2007
  2. REVLIMID [Suspect]
     Route: 048
     Dates: start: 20120419
  3. BETAPRED [Concomitant]
     Indication: PRODUCT USED FOR UNKNOWN INDICATION
     Route: 065
  4. ENDOXAN [Concomitant]
     Indication: PLASMA CELL MYELOMA
     Route: 065
  5. BACTRIM [Concomitant]
     Indication: PRODUCT USED FOR UNKNOWN INDICATION
     Route: 065
  6. OSTAC [Concomitant]
     Indication: SUPPLEMENTATION THERAPY
     Route: 065
     Dates: start: 199811
  7. PAMIDRONATE [Concomitant]
     Indication: SUPPLEMENTATION THERAPY
     Route: 041
     Dates: start: 200101
  8. DOLCONTIN [Concomitant]
     Indication: PAIN
     Dosage: 140 MILLIGRAM
     Route: 065
     Dates: start: 200101
  9. WARFARIN [Concomitant]
     Indication: ANTICOAGULANT THERAPY
     Route: 065
  10. ARANESP [Concomitant]
     Indication: PRODUCT USED FOR UNKNOWN INDICATION
     Route: 065

REACTIONS (17)
  - Cataract [Unknown]
  - Liver disorder [Unknown]
  - Febrile infection [Unknown]
  - Tooth disorder [Recovered/Resolved]
  - Hyperhidrosis [Unknown]
  - Pain [Unknown]
  - Vision blurred [Unknown]
  - Bone pain [Unknown]
  - Chills [Unknown]
  - Fatigue [Unknown]
  - Nasopharyngitis [Unknown]
  - Chills [Unknown]
  - Vision blurred [Unknown]
  - Vision blurred [Unknown]
  - Asthenia [Unknown]
  - Vision blurred [Unknown]
  - Upper respiratory tract infection [Unknown]
